FAERS Safety Report 4970933-6 (Version None)
Quarter: 2006Q2

REPORT INFORMATION
  Report Type: 
  Country: None (occurrence: None)
  Receive Date: 20060412
  Receipt Date: 20060405
  Transmission Date: 20061013
  Serious: Yes (Other)
  Sender: FDA-Public Use
  Company Number: JP-AVENTIS-200611114JP

PATIENT

DRUGS (4)
  1. LASIX [Suspect]
     Route: 048
  2. PHOSBLOCK [Concomitant]
  3. ONE-ALPHA [Concomitant]
  4. DIOVAN [Concomitant]

REACTIONS (1)
  - TOXIC EPIDERMAL NECROLYSIS [None]
